FAERS Safety Report 19987502 (Version 3)
Quarter: 2021Q4

REPORT INFORMATION
  Report Type: Spontaneous
  Country: JP (occurrence: JP)
  Receive Date: 20211022
  Receipt Date: 20211118
  Transmission Date: 20220303
  Serious: Yes (Hospitalization, Other)
  Sender: FDA-Public Use
  Company Number: JP-NOVARTISPH-NVSJ2021JP017234

PATIENT
  Sex: Female
  Weight: 1.518 kg

DRUGS (6)
  1. CARBOPLATIN [Suspect]
     Active Substance: CARBOPLATIN
     Indication: Foetal exposure during pregnancy
     Dosage: MATERNAL DOSE: AUC 5 AT 21 WEEKS AND 6 DAYS OF GESTATION
     Route: 064
  2. CARBOPLATIN [Suspect]
     Active Substance: CARBOPLATIN
     Dosage: MATERNAL DOSE: AUC 5 AT 24 WEEKS AND 6 DAYS OF GESTATION
     Route: 064
  3. CARBOPLATIN [Suspect]
     Active Substance: CARBOPLATIN
     Dosage: MATERNAL DOSE: AUC 5 AT 27 WEEKS AND 6 DAYS OF GESTATION
     Route: 064
  4. PACLITAXEL [Suspect]
     Active Substance: PACLITAXEL
     Indication: Foetal exposure during pregnancy
     Dosage: MATERNAL DOSE:175 MG/M2 AT 21 WEEKS AND 6 DAYS OF GESTATION
     Route: 064
  5. PACLITAXEL [Suspect]
     Active Substance: PACLITAXEL
     Dosage: MATERNAL DOSE:175 MG/M2 AT 24 WEEKS AND 6 DAYS OF GESTATION
     Route: 064
  6. PACLITAXEL [Suspect]
     Active Substance: PACLITAXEL
     Dosage: MATERNAL DOSE:175 MG/M2 AT 27 WEEKS AND 6 DAYS OF GESTATION
     Route: 064

REACTIONS (5)
  - Premature baby [Unknown]
  - Low birth weight baby [Unknown]
  - Neonatal respiratory distress syndrome [Unknown]
  - Developmental delay [Recovered/Resolved]
  - Foetal exposure during pregnancy [Unknown]
